FAERS Safety Report 20870876 (Version 1)
Quarter: 2022Q2

REPORT INFORMATION
  Report Type: Spontaneous
  Country: US (occurrence: None)
  Receive Date: 20220524
  Receipt Date: 20220524
  Transmission Date: 20220720
  Serious: Yes (Other)
  Sender: FDA-Public Use
  Company Number: None

PATIENT
  Age: 77 Year
  Sex: Female
  Weight: 63.05 kg

DRUGS (1)
  1. CEFUROXIME [Suspect]
     Active Substance: CEFUROXIME
     Indication: Sinusitis
     Dosage: FREQUENCY : TWICE A DAY;?
     Route: 048
     Dates: start: 20211013, end: 20211014

REACTIONS (13)
  - Malaise [None]
  - Vomiting [None]
  - Dyspnoea [None]
  - Dysphonia [None]
  - Tongue disorder [None]
  - Gait disturbance [None]
  - Rash [None]
  - Feeling abnormal [None]
  - Burning sensation [None]
  - Pruritus [None]
  - Rash [None]
  - Fatigue [None]
  - Skin exfoliation [None]

NARRATIVE: CASE EVENT DATE: 20211013
